FAERS Safety Report 6975238-X (Version None)
Quarter: 2010Q3

REPORT INFORMATION
  Report Type: 
  Country: None (occurrence: None)
  Receive Date: 20100910
  Receipt Date: 20090223
  Transmission Date: 20110219
  Serious: No
  Sender: FDA-Public Use
  Company Number: US-WYE-H08328209

PATIENT
  Weight: 86.26 kg

DRUGS (4)
  1. PRISTIQ [Suspect]
     Indication: BIPOLAR DISORDER
     Route: 048
  2. PRISTIQ [Suspect]
     Indication: MAJOR DEPRESSION
  3. KLONOPIN [Concomitant]
  4. LAMICTAL [Concomitant]

REACTIONS (3)
  - INSOMNIA [None]
  - TENSION [None]
  - THINKING ABNORMAL [None]
